FAERS Safety Report 9286031 (Version 1)
Quarter: 2013Q2

REPORT INFORMATION
  Report Type: Spontaneous
  Country: US (occurrence: None)
  Receive Date: 20130507
  Receipt Date: 20130507
  Transmission Date: 20140414
  Serious: Yes (Disabling, Other)
  Sender: FDA-Public Use
  Company Number: 2013AP004817

PATIENT
  Age: 40 Year
  Sex: 0

DRUGS (3)
  1. ALLOPURINOL [Suspect]
  2. COLCHICINE [Suspect]
  3. ERYTHROMYCIN [Suspect]

REACTIONS (2)
  - Stevens-Johnson syndrome [None]
  - Toxic epidermal necrolysis [None]
